FAERS Safety Report 6271532-9 (Version None)
Quarter: 2009Q3

REPORT INFORMATION
  Report Type: 
  Country: None (occurrence: None)
  Receive Date: 20090717
  Receipt Date: 20090707
  Transmission Date: 20100115
  Serious: Yes (Other)
  Sender: FDA-Public Use
  Company Number: US-PFIZER INC-2009238135

PATIENT
  Sex: Female

DRUGS (1)
  1. TIKOSYN [Suspect]

REACTIONS (3)
  - LIP SWELLING [None]
  - PHARYNGEAL OEDEMA [None]
  - URTICARIA [None]
